FAERS Safety Report 13237101 (Version 1)
Quarter: 2017Q1

REPORT INFORMATION
  Report Type: Spontaneous
  Country: US (occurrence: US)
  Receive Date: 20170215
  Receipt Date: 20170215
  Transmission Date: 20170428
  Serious: Yes (Hospitalization)
  Sender: FDA-Public Use
  Company Number: US-VERTEX PHARMACEUTICALS-2017-000786

PATIENT
  Sex: Female

DRUGS (11)
  1. AQUADEKS [Concomitant]
     Active Substance: MINERALS\VITAMINS
  2. ZOFRAN [Concomitant]
     Active Substance: ONDANSETRON HYDROCHLORIDE
  3. AMIKACIN [Concomitant]
     Active Substance: AMIKACIN
  4. CREON [Concomitant]
     Active Substance: PANCRELIPASE AMYLASE\PANCRELIPASE LIPASE\PANCRELIPASE PROTEASE
  5. VITAMIN D3 [Concomitant]
     Active Substance: CHOLECALCIFEROL
  6. MIRENA [Concomitant]
     Active Substance: LEVONORGESTREL
  7. ORKAMBI [Suspect]
     Active Substance: IVACAFTOR\LUMACAFTOR
     Indication: CYSTIC FIBROSIS
     Dosage: 200/250 MG, BID
     Route: 048
     Dates: start: 20170106
  8. PULMOZYME [Concomitant]
     Active Substance: DORNASE ALFA
  9. ZOSYN [Concomitant]
     Active Substance: PIPERACILLIN SODIUM\TAZOBACTAM SODIUM
  10. ALBUTEROL. [Concomitant]
     Active Substance: ALBUTEROL
  11. VITAMIN A [Concomitant]
     Active Substance: VITAMIN A

REACTIONS (1)
  - Cystic fibrosis [Unknown]

NARRATIVE: CASE EVENT DATE: 2017
